FAERS Safety Report 9677225 (Version 2)
Quarter: 2013Q4

REPORT INFORMATION
  Report Type: Spontaneous
  Country: US (occurrence: US)
  Receive Date: 20131108
  Receipt Date: 20131108
  Transmission Date: 20140711
  Serious: Yes (Hospitalization)
  Sender: FDA-Public Use
  Company Number: US-CUBIST PHARMACEUTICAL, INC.-2013CBST000715

PATIENT
  Sex: 0

DRUGS (13)
  1. CUBICIN [Suspect]
     Indication: SEPTIC ARTHRITIS STAPHYLOCOCCAL
     Dosage: 450 MG, QD
     Route: 042
     Dates: start: 20130720, end: 20130724
  2. CUBICIN [Suspect]
     Indication: STAPHYLOCOCCAL INFECTION
     Dosage: 6 MG/KG, QD
     Route: 042
     Dates: start: 20130720, end: 20130724
  3. CUBICIN [Suspect]
     Indication: OFF LABEL USE
     Dosage: 450 MG, QD
     Route: 042
     Dates: start: 20130726, end: 20130731
  4. CUBICIN [Suspect]
     Dosage: 6 MG/KG, QD
     Route: 042
     Dates: start: 20130726, end: 20130731
  5. ALLOPURINOL [Concomitant]
     Indication: GOUTY ARTHRITIS
     Dosage: 300 MG, ONCE A DAY (AM)
     Route: 048
     Dates: start: 200701
  6. ALLOPURINOL [Concomitant]
     Dosage: 200 MG, ONCE A DAY (PM)
     Route: 048
     Dates: start: 200701
  7. AMLODIPINE [Concomitant]
     Indication: HYPERTENSION
     Dosage: 7.5 MG, QD
     Route: 048
     Dates: start: 201307
  8. ASPIRIN [Concomitant]
     Indication: ARTHRITIS
     Dosage: 325 MG, BID
     Route: 048
     Dates: start: 20130718, end: 20130730
  9. COLCHICINE [Concomitant]
     Indication: GOUT
     Dosage: 0.6 MG, BID
     Route: 048
     Dates: start: 200806
  10. SINGULAIR [Concomitant]
     Indication: ASTHMA
     Dosage: 10 MG, QD
     Route: 048
     Dates: start: 200811
  11. ADVAIR [Concomitant]
     Indication: ASTHMA
     Dosage: 1 PUFF, BID, INHALATION
     Route: 050
     Dates: start: 200508
  12. ALBUTEROL                          /00139501/ [Concomitant]
     Indication: ASTHMA
     Dosage: 2 PUFF, Q4H PRN, INHALATION
     Route: 050
     Dates: start: 200703
  13. VICODIN [Concomitant]
     Indication: PRODUCT USED FOR UNKNOWN INDICATION
     Dosage: 1-2 TABLETS AS NEEDED EVERY 4 HOURS
     Route: 065

REACTIONS (1)
  - Eosinophilic pneumonia [Recovered/Resolved]
